FAERS Safety Report 22783627 (Version 3)
Quarter: 2025Q1

REPORT INFORMATION
  Report Type: Report from Study
  Country: IE (occurrence: IE)
  Receive Date: 20230803
  Receipt Date: 20250219
  Transmission Date: 20250409
  Serious: Yes (Other)
  Sender: ROCHE
  Company Number: IE-ROCHE-3397305

PATIENT
  Sex: Female

DRUGS (1)
  1. OCREVUS [Suspect]
     Active Substance: OCRELIZUMAB
     Indication: Product used for unknown indication
     Route: 040

REACTIONS (3)
  - Sinusitis [Unknown]
  - SARS-CoV-2 test positive [Unknown]
  - Laryngitis [Unknown]
